FAERS Safety Report 25476653 (Version 2)
Quarter: 2025Q3

REPORT INFORMATION
  Report Type: Report from Study
  Country: ZA (occurrence: ZA)
  Receive Date: 20250625
  Receipt Date: 20250809
  Transmission Date: 20251021
  Serious: Yes (Hospitalization, Other)
  Sender: ALEXION PHARMACEUTICALS
  Company Number: ZA-AstraZeneca-CH-00779814A

PATIENT
  Age: 82 Year
  Sex: Female

DRUGS (11)
  1. BUDESONIDE\FORMOTEROL [Suspect]
     Active Substance: BUDESONIDE\FORMOTEROL
     Indication: Asthma
  2. BUDESONIDE\FORMOTEROL [Suspect]
     Active Substance: BUDESONIDE\FORMOTEROL
  3. DOXAZOSIN MESYLATE [Concomitant]
     Active Substance: DOXAZOSIN MESYLATE
  4. BISOPROLOL FUMARATE [Concomitant]
     Active Substance: BISOPROLOL FUMARATE
     Indication: Hypertension
  5. Cynt [Concomitant]
     Indication: Hypertension
  6. LOSARTAN POTASSIUM [Concomitant]
     Active Substance: LOSARTAN POTASSIUM
     Indication: Hypertension
  7. RIVAROXABAN [Concomitant]
     Active Substance: RIVAROXABAN
     Indication: Haemorrhage
  8. RIVAROXABAN [Concomitant]
     Active Substance: RIVAROXABAN
  9. QUETIAPINE [Concomitant]
     Active Substance: QUETIAPINE
     Indication: Mental disorder
  10. Pendine [Concomitant]
     Indication: Hypertension
  11. PREGABALIN [Concomitant]
     Active Substance: PREGABALIN
     Indication: Epilepsy

REACTIONS (1)
  - Pulmonary thrombosis [Unknown]
